FAERS Safety Report 4621049-X (Version None)
Quarter: 2005Q1

REPORT INFORMATION
  Report Type: 
  Country: None (occurrence: None)
  Receive Date: 20050328
  Receipt Date: 20050321
  Transmission Date: 20050727
  Serious: Yes (Death, Hospitalization, Other)
  Sender: FDA-Public Use
  Company Number: GB-MERCK-0503USA04339

PATIENT
  Age: 75 Year
  Sex: Female

DRUGS (14)
  1. PRINIVIL [Suspect]
     Indication: HYPERTENSION
     Route: 048
  2. LEFLUNOMIDE [Suspect]
     Indication: RHEUMATOID ARTHRITIS
     Route: 048
  3. ASPIRIN [Concomitant]
     Route: 065
  4. ATORVASTATIN CALCIUM [Concomitant]
     Route: 065
     Dates: start: 19990101
  5. BUDESONIDE [Concomitant]
     Route: 055
  6. QUININE SULFATE [Concomitant]
     Route: 065
  7. LANSOPRAZOLE [Concomitant]
     Route: 065
  8. [THERAPY UNSPECIFIED] [Concomitant]
     Route: 065
  9. NITROGLYCERIN [Concomitant]
     Route: 065
  10. DILTIAZEM HYDROCHLORIDE [Concomitant]
     Route: 065
  11. MIDAZOLAM [Concomitant]
     Route: 065
  12. FENTANYL [Concomitant]
     Route: 065
  13. PROPOFOL [Concomitant]
     Route: 065
  14. PANCURONIUM BROMIDE [Concomitant]
     Route: 065

REACTIONS (10)
  - CORONARY ARTERY DISEASE [None]
  - GASTROINTESTINAL HAEMORRHAGE [None]
  - HAEMODIALYSIS [None]
  - HEPATIC FAILURE [None]
  - HEPATIC INFARCTION [None]
  - HEPATORENAL SYNDROME [None]
  - INCISION SITE HAEMORRHAGE [None]
  - POST PROCEDURAL HAEMORRHAGE [None]
  - RENAL FAILURE [None]
  - ULCER [None]
